FAERS Safety Report 10293378 (Version 3)
Quarter: 2015Q1

REPORT INFORMATION
  Report Type: Spontaneous
  Country: JP (occurrence: JP)
  Receive Date: 20140710
  Receipt Date: 20150122
  Transmission Date: 20150720
  Serious: Yes (Hospitalization, Other)
  Sender: FDA-Public Use
  Company Number: JP-GLAXOSMITHKLINE-B1011399A

PATIENT
  Age: 60 Year
  Sex: Female

DRUGS (5)
  1. ELTROMBOPAG [Suspect]
     Active Substance: ELTROMBOPAG
     Indication: IMMUNE THROMBOCYTOPENIC PURPURA
     Route: 048
     Dates: start: 201301
  2. ITRIZOLE [Concomitant]
     Active Substance: ITRACONAZOLE
     Indication: PROPHYLAXIS
     Route: 048
     Dates: start: 2013
  3. AMLODIN [Concomitant]
     Active Substance: AMLODIPINE BESYLATE
     Indication: HYPERTENSION
     Route: 048
     Dates: start: 2010
  4. BONOTEO [Concomitant]
     Active Substance: MINODRONIC ACID
     Indication: OSTEOPOROSIS
     Route: 048
  5. PREDONINE [Concomitant]
     Active Substance: PREDNISOLONE\PREDNISOLONE ACETATE\PREDNISOLONE SODIUM SUCCINATE
     Indication: IMMUNE THROMBOCYTOPENIC PURPURA
     Route: 048
     Dates: start: 1999

REACTIONS (9)
  - Pulmonary hypertension [Unknown]
  - Pulmonary embolism [Unknown]
  - Chest pain [Unknown]
  - Pain in extremity [Unknown]
  - Deep vein thrombosis [Unknown]
  - Fluid retention [Unknown]
  - Pulmonary embolism [Recovered/Resolved]
  - Cardiomegaly [Unknown]
  - Dyspnoea [Unknown]

NARRATIVE: CASE EVENT DATE: 201405
